FAERS Safety Report 18586236 (Version 2)
Quarter: 2021Q1

REPORT INFORMATION
  Report Type: Spontaneous
  Country: US (occurrence: US)
  Receive Date: 20201207
  Receipt Date: 20210309
  Transmission Date: 20210419
  Serious: No
  Sender: FDA-Public Use
  Company Number: US-PFIZER INC-2020481131

PATIENT
  Age: 73 Year
  Sex: Female
  Weight: 56.69 kg

DRUGS (2)
  1. METAXALONE. [Suspect]
     Active Substance: METAXALONE
     Indication: MUSCLE SPASMS
  2. METAXALONE. [Suspect]
     Active Substance: METAXALONE
     Indication: MUSCLE SPASMS
     Dosage: 800 MG [UP TO 2/ DAY]

REACTIONS (1)
  - Drug ineffective [Unknown]
